FAERS Safety Report 8620002-9 (Version None)
Quarter: 2012Q3

REPORT INFORMATION
  Report Type: 
  Country: None (occurrence: None)
  Receive Date: 20120824
  Receipt Date: 20120820
  Transmission Date: 20120928
  Serious: Yes (Death)
  Sender: FDA-Public Use
  Company Number: PHHY2012IN072816

PATIENT
  Age: 51 Year
  Sex: Male

DRUGS (1)
  1. DEFERASIROX [Suspect]
     Indication: CHELATION THERAPY
     Dosage: 800 MG, DAILY

REACTIONS (1)
  - DEATH [None]
